FAERS Safety Report 8585352 (Version 3)
Quarter: 2012Q4

REPORT INFORMATION
  Report Type: 
  Country: JP (occurrence: JP)
  Receive Date: 20120530
  Receipt Date: 20121102
  Transmission Date: 20130627
  Serious: Yes (Death, Hospitalization)
  Sender: FDA-Public Use
  Company Number: JP-ELI_LILLY_AND_COMPANY-JP201205006302

PATIENT
  Age: 75 Year
  Sex: Female

DRUGS (2)
  1. FORTEO [Suspect]
     Dosage: UNK
     Route: 058
     Dates: start: 20120125, end: 20120324
  2. FORTEO [Suspect]
     Dosage: UNK
     Route: 058
     Dates: start: 20120513

REACTIONS (4)
  - Death [Fatal]
  - Compression fracture [Unknown]
  - Respiratory disorder [Unknown]
  - Nausea [Unknown]
